FAERS Safety Report 9055324 (Version 3)
Quarter: 2013Q1

REPORT INFORMATION
  Report Type: Spontaneous
  Country: JP (occurrence: JP)
  Receive Date: 20130206
  Receipt Date: 20130225
  Transmission Date: 20140127
  Serious: Yes (Hospitalization, Other)
  Sender: FDA-Public Use
  Company Number: JP-ASTRAZENECA-2013SE07278

PATIENT
  Age: 70 Year
  Sex: Male

DRUGS (2)
  1. NEXIUM [Suspect]
     Indication: GASTRIC ULCER
     Route: 048
     Dates: start: 20130119, end: 20130124
  2. DRUGS FOR COLD [Concomitant]

REACTIONS (4)
  - Pruritus generalised [Unknown]
  - Painful defaecation [Unknown]
  - Bile duct obstruction [Unknown]
  - Jaundice [Not Recovered/Not Resolved]
